FAERS Safety Report 6580769-0 (Version None)
Quarter: 2010Q1

REPORT INFORMATION
  Report Type: 
  Country: None (occurrence: None)
  Receive Date: 20100213
  Receipt Date: 20100201
  Transmission Date: 20100710
  Serious: Yes (Hospitalization)
  Sender: FDA-Public Use
  Company Number: US-ELI_LILLY_AND_COMPANY-US200910007641

PATIENT
  Sex: Female
  Weight: 87.075 kg

DRUGS (8)
  1. BYETTA [Suspect]
     Indication: TYPE 2 DIABETES MELLITUS
     Dosage: 10 UG, 2/D
     Route: 058
     Dates: start: 20080601, end: 20080701
  2. BYETTA [Suspect]
     Dosage: 10 UG, 2/D
     Route: 058
     Dates: start: 20091008
  3. ACTOS                                   /AUS/ [Concomitant]
     Indication: TYPE 2 DIABETES MELLITUS
     Dosage: 45 MG, DAILY (1/D)
     Route: 048
  4. PRANDIN [Concomitant]
     Indication: TYPE 2 DIABETES MELLITUS
     Dosage: 2 MG, DAILY (1/D)
     Route: 048
  5. SIMVASTATIN [Concomitant]
     Dosage: 20 MG, DAILY (1/D)
     Route: 048
  6. FOSINOPRIL SODIUM [Concomitant]
     Dosage: 40 MG, UNK
     Route: 048
  7. NEXIUM [Concomitant]
     Dosage: 40 MG, UNKNOWN
     Route: 048
  8. AMMONIUM LACTATE [Concomitant]
     Dosage: 12 %, UNKNOWN

REACTIONS (7)
  - BACK PAIN [None]
  - BLOOD GLUCOSE INCREASED [None]
  - CONSTIPATION [None]
  - DEHYDRATION [None]
  - DIVERTICULITIS [None]
  - FALL [None]
  - HUMERUS FRACTURE [None]
